FAERS Safety Report 6014433-3 (Version None)
Quarter: 2008Q4

REPORT INFORMATION
  Report Type: 
  Country: None (occurrence: None)
  Receive Date: 20081219
  Receipt Date: 20080617
  Transmission Date: 20090506
  Serious: No
  Sender: FDA-Public Use
  Company Number: A0733397A

PATIENT
  Age: 89 Year
  Sex: Male

DRUGS (5)
  1. AVODART [Suspect]
     Indication: BENIGN PROSTATIC HYPERPLASIA
     Dosage: 1CAP PER DAY
     Route: 048
     Dates: start: 20070601
  2. SPIRIVA [Suspect]
     Indication: BRONCHITIS
     Dosage: 1PUFF PER DAY
     Route: 055
     Dates: start: 20080501
  3. ADVAIR DISKUS 250/50 [Concomitant]
  4. ALBUTEROL [Concomitant]
  5. FLOMAX [Concomitant]

REACTIONS (1)
  - DRY MOUTH [None]
